APPROVED DRUG PRODUCT: TEMOZOLOMIDE
Active Ingredient: TEMOZOLOMIDE
Strength: 140MG
Dosage Form/Route: CAPSULE;ORAL
Application: A204639 | Product #004 | TE Code: AB
Applicant: CHEMI SPA
Approved: Nov 23, 2016 | RLD: No | RS: No | Type: RX